FAERS Safety Report 5118234-X (Version None)
Quarter: 2006Q4

REPORT INFORMATION
  Report Type: 
  Country: None (occurrence: None)
  Receive Date: 20061002
  Receipt Date: 20060621
  Transmission Date: 20070319
  Serious: No
  Sender: FDA-Public Use
  Company Number: US-BRISTOL-MYERS SQUIBB COMPANY-13418959

PATIENT
  Age: 47 Year
  Sex: Female
  Weight: 63 kg

DRUGS (9)
  1. ORENCIA [Suspect]
     Indication: RHEUMATOID ARTHRITIS
     Route: 042
     Dates: start: 20060620
  2. SYNTHROID [Concomitant]
  3. PREDNISONE [Concomitant]
  4. METHOTREXATE [Concomitant]
  5. FOLIC ACID [Concomitant]
  6. SULFASALAZINE [Concomitant]
  7. MULTI-VITAMIN [Concomitant]
  8. PLAQUENIL [Concomitant]
  9. ACIPHEX [Concomitant]

REACTIONS (2)
  - PRURITUS [None]
  - URTICARIA [None]
